FAERS Safety Report 8327597-3 (Version None)
Quarter: 2012Q2

REPORT INFORMATION
  Report Type: 
  Country: None (occurrence: None)
  Receive Date: 20120502
  Receipt Date: 20120424
  Transmission Date: 20120825
  Serious: Yes (Hospitalization)
  Sender: FDA-Public Use
  Company Number: AT-JNJFOC-20120411295

PATIENT
  Sex: Male
  Weight: 85.3 kg

DRUGS (2)
  1. PALIPERIDONE [Suspect]
     Indication: SCHIZOPHRENIA
     Dates: start: 20111206
  2. ESCITALOPRAM [Concomitant]
     Indication: DEPRESSION
     Dates: start: 20120313

REACTIONS (1)
  - PSYCHOTIC DISORDER [None]
